FAERS Safety Report 8987912 (Version 2)
Quarter: 2014Q3

REPORT INFORMATION
  Report Type: Report from Study
  Country: US (occurrence: US)
  Receive Date: 20121227
  Receipt Date: 20140805
  Transmission Date: 20150326
  Serious: Yes (Other)
  Sender: FDA-Public Use
  Company Number: US-B.I. PHARMACEUTICALS,INC./RIDGEFIELD-2012-BI-03734GD

PATIENT

DRUGS (1)
  1. PRAMIPEXOLE [Suspect]
     Active Substance: PRAMIPEXOLE
     Indication: RESTLESS LEGS SYNDROME
     Dosage: INITIALLY SINGLE EVENING DOSE OF 0.125 OR 0.25 MG, DOSE INCREASE IN 0.125 OR 0.25 MG INCREMENTS EVER
     Route: 065

REACTIONS (1)
  - Restless legs syndrome [Unknown]
